FAERS Safety Report 10677591 (Version 2)
Quarter: 2015Q1

REPORT INFORMATION
  Report Type: Spontaneous
  Country: CA (occurrence: CA)
  Receive Date: 20141228
  Receipt Date: 20150123
  Transmission Date: 20150720
  Serious: Yes (Death)
  Sender: FDA-Public Use
  Company Number: CA-009507513-1412CAN011453

PATIENT
  Age: 74 Year
  Sex: Female
  Weight: 70.3 kg

DRUGS (1)
  1. POSANOL [Suspect]
     Active Substance: POSACONAZOLE
     Indication: BRONCHOPULMONARY ASPERGILLOSIS
     Dosage: 200 MG, QID
     Route: 048
     Dates: start: 20141210, end: 20141220

REACTIONS (1)
  - Death [Fatal]

NARRATIVE: CASE EVENT DATE: 20141220
